FAERS Safety Report 12306224 (Version 2)
Quarter: 2016Q3

REPORT INFORMATION
  Report Type: Report from Study
  Country: US (occurrence: US)
  Receive Date: 20160426
  Receipt Date: 20160826
  Transmission Date: 20161109
  Serious: Yes (Hospitalization, Other)
  Sender: FDA-Public Use
  Company Number: US-AMGEN-USASL2016051116

PATIENT
  Age: 65 Year
  Sex: Female

DRUGS (1)
  1. ENBREL [Suspect]
     Active Substance: ETANERCEPT
     Indication: RHEUMATOID ARTHRITIS
     Dosage: 50 MG, QWK
     Route: 065
     Dates: end: 2016

REACTIONS (9)
  - Appendicectomy [Unknown]
  - Spinal column stenosis [Unknown]
  - Upper limb fracture [Unknown]
  - Tendon rupture [Unknown]
  - Drug effect decreased [Unknown]
  - Intervertebral disc protrusion [Unknown]
  - Meniscus injury [Unknown]
  - Pain in extremity [Unknown]
  - Peripheral swelling [Unknown]

NARRATIVE: CASE EVENT DATE: 2016
